FAERS Safety Report 24638882 (Version 1)
Quarter: 2024Q4

REPORT INFORMATION
  Report Type: Spontaneous
  Country: US (occurrence: US)
  Receive Date: 20241119
  Receipt Date: 20241119
  Transmission Date: 20250115
  Serious: Yes (Other)
  Sender: SANOFI AVENTIS
  Company Number: US-SA-2024SA322394

PATIENT
  Age: 43 Year
  Sex: Female

DRUGS (1)
  1. TEPLIZUMAB-MZWV [Suspect]
     Active Substance: TEPLIZUMAB-MZWV
     Indication: Type 1 diabetes mellitus
     Dosage: 500 UG/M2, QD
     Route: 042
     Dates: start: 20241101

REACTIONS (8)
  - Leukopenia [Unknown]
  - Thrombocytopenia [Recovered/Resolved]
  - Tachycardia [Unknown]
  - Insomnia [Unknown]
  - Fluid retention [Unknown]
  - Joint swelling [Unknown]
  - Peripheral swelling [Unknown]
  - Dehydration [Unknown]

NARRATIVE: CASE EVENT DATE: 20241104
